FAERS Safety Report 8137526-3 (Version None)
Quarter: 2012Q1

REPORT INFORMATION
  Report Type: 
  Country: None (occurrence: None)
  Receive Date: 20120215
  Receipt Date: 20111031
  Transmission Date: 20120608
  Serious: Yes (Other)
  Sender: FDA-Public Use
  Company Number: CA-JNJFOC-20120107860

PATIENT
  Sex: Female
  Weight: 56.8 kg

DRUGS (7)
  1. BENADRYL [Suspect]
     Route: 065
  2. SOLU-CORTEF [Concomitant]
     Route: 065
  3. SYNTHROID [Concomitant]
     Route: 065
  4. REMICADE [Suspect]
     Route: 042
     Dates: start: 20111031
  5. REMICADE [Suspect]
     Indication: CROHN'S DISEASE
     Route: 042
  6. BENADRYL [Suspect]
     Indication: PREMEDICATION
     Route: 065
     Dates: start: 20111031
  7. DESOGESTREL AND ETHINYL ESTRADIOL [Concomitant]
     Route: 065

REACTIONS (3)
  - PARAESTHESIA [None]
  - INFUSION RELATED REACTION [None]
  - PAIN [None]
